FAERS Safety Report 14519213 (Version 3)
Quarter: 2019Q2

REPORT INFORMATION
  Report Type: Spontaneous
  Country: US (occurrence: US)
  Receive Date: 20180212
  Receipt Date: 20190612
  Transmission Date: 20190711
  Serious: Yes (Hospitalization, Other)
  Sender: FDA-Public Use
  Company Number: US-PFIZER INC-2018057040

PATIENT
  Age: 65 Year
  Sex: Female
  Weight: 90.72 kg

DRUGS (13)
  1. CELEBREX [Suspect]
     Active Substance: CELECOXIB
     Indication: FIBROMYALGIA
     Dosage: 200 MG, DAILY
     Route: 048
     Dates: start: 201801, end: 201801
  2. FUROSEMIDE. [Concomitant]
     Active Substance: FUROSEMIDE
     Dosage: 20 MG, UNK
  3. LYRICA [Suspect]
     Active Substance: PREGABALIN
     Indication: FIBROMYALGIA
     Dosage: 200 MG, 1X/DAY
     Route: 048
     Dates: start: 201712
  4. CELEBREX [Suspect]
     Active Substance: CELECOXIB
     Dosage: UNK
  5. OMEPRAZOLE. [Concomitant]
     Active Substance: OMEPRAZOLE
     Dosage: 20 MG, 2X/DAY
  6. LISINOPRIL. [Concomitant]
     Active Substance: LISINOPRIL
     Dosage: 30 MG, 1X/DAY
  7. ALPRAZOLAM. [Concomitant]
     Active Substance: ALPRAZOLAM
     Dosage: 0.5 MG, 3X/DAY
  8. ARMOUR THYROID [Concomitant]
     Active Substance: THYROID, PORCINE
     Dosage: 120 MG, DAILY
  9. LYRICA [Suspect]
     Active Substance: PREGABALIN
     Indication: RESTLESSNESS
     Dosage: 150MG, TWICE A DAY
     Route: 048
     Dates: start: 201801, end: 201801
  10. LYRICA [Suspect]
     Active Substance: PREGABALIN
     Indication: BACK PAIN
  11. CLOPIDOGREL BISULFATE. [Concomitant]
     Active Substance: CLOPIDOGREL BISULFATE
     Dosage: UNK UNK, 1X/DAY
  12. ARMOUR THYROID [Concomitant]
     Active Substance: THYROID, PORCINE
     Dosage: 90 MG, 1X/DAY
  13. KLOR-CON [Concomitant]
     Active Substance: POTASSIUM CHLORIDE
     Dosage: 10 MEQ, 1X/DAY

REACTIONS (7)
  - Pulmonary oedema [Not Recovered/Not Resolved]
  - Intentional product misuse [Recovered/Resolved]
  - Mental disorder [Not Recovered/Not Resolved]
  - Respiratory tract oedema [Not Recovered/Not Resolved]
  - Dyspnoea [Not Recovered/Not Resolved]
  - Swelling [Not Recovered/Not Resolved]
  - Bronchitis viral [Not Recovered/Not Resolved]

NARRATIVE: CASE EVENT DATE: 201801
